FAERS Safety Report 19423539 (Version 2)
Quarter: 2021Q3

REPORT INFORMATION
  Report Type: Spontaneous
  Country: US (occurrence: US)
  Receive Date: 20210616
  Receipt Date: 20210702
  Transmission Date: 20211014
  Serious: Yes (Death, Hospitalization, Other)
  Sender: FDA-Public Use
  Company Number: US-009507513-2106USA003115

PATIENT
  Age: 69 Year
  Sex: Male

DRUGS (5)
  1. ROSUVASTATIN. [Concomitant]
     Active Substance: ROSUVASTATIN
     Dosage: UNK
  2. CARBOPLATIN. [Concomitant]
     Active Substance: CARBOPLATIN
     Dosage: UNK
  3. DEXAMETHASONE. [Concomitant]
     Active Substance: DEXAMETHASONE
     Dosage: UNK
  4. KEYTRUDA [Suspect]
     Active Substance: PEMBROLIZUMAB
     Indication: LUNG CARCINOMA CELL TYPE UNSPECIFIED STAGE IV
     Dosage: 1 DOSE, UNKNOWN DOSE, EVERY 3 WEEKS
     Route: 042
     Dates: start: 20210420
  5. ALIMTA [Concomitant]
     Active Substance: PEMETREXED DISODIUM
     Dosage: UNK

REACTIONS (3)
  - Atrial fibrillation [Unknown]
  - Pneumonitis [Unknown]
  - Respiratory failure [Fatal]

NARRATIVE: CASE EVENT DATE: 20210423
